FAERS Safety Report 6087273-7 (Version None)
Quarter: 2009Q1

REPORT INFORMATION
  Report Type: 
  Country: None (occurrence: None)
  Receive Date: 20090219
  Receipt Date: 20081016
  Transmission Date: 20090719
  Serious: Yes (Other)
  Sender: FDA-Public Use
  Company Number: WAES 0810USA03372

PATIENT
  Age: 42 Year
  Sex: Male

DRUGS (16)
  1. ISENTRESS [Suspect]
     Indication: ANTIRETROVIRAL THERAPY
     Dosage: 400 MG/BID/PO
     Route: 048
     Dates: start: 20071109, end: 20080923
  2. ISENTRESS [Suspect]
     Indication: HIV INFECTION
     Dosage: 400 MG/BID/PO
     Route: 048
     Dates: start: 20071109, end: 20080923
  3. AMBIEN CR [Concomitant]
  4. DEPAKOTE [Concomitant]
  5. FLOMAX [Concomitant]
  6. FLOVENT [Concomitant]
  7. KEPPRA [Concomitant]
  8. MS CONTIN [Concomitant]
  9. MORPHINE SULFATE [Concomitant]
  10. NEURONTIN [Concomitant]
  11. TRIZIVIR [Concomitant]
  12. ALBUTEROL [Concomitant]
  13. AMITRIPTYLINE HYDROCHLORIDE [Concomitant]
  14. METOPROLOL [Concomitant]
  15. RANITIDINE [Concomitant]
  16. WARFARIN SODIUM [Concomitant]

REACTIONS (1)
  - RHABDOMYOLYSIS [None]
